FAERS Safety Report 6505699-1 (Version None)
Quarter: 2009Q4

REPORT INFORMATION
  Report Type: 
  Country: None (occurrence: None)
  Receive Date: 20091218
  Receipt Date: 20091209
  Transmission Date: 20100525
  Serious: Yes (Life-Threatening)
  Sender: FDA-Public Use
  Company Number: B0613143A

PATIENT
  Sex: Female

DRUGS (6)
  1. ARIXTRA [Suspect]
     Indication: DEEP VEIN THROMBOSIS
     Dosage: 7.5MG PER DAY
     Route: 058
     Dates: start: 20090304, end: 20090308
  2. PREVISCAN [Suspect]
     Indication: DEEP VEIN THROMBOSIS
     Dosage: 20MG PER DAY
     Route: 048
     Dates: start: 20090306, end: 20090308
  3. NEXIUM [Concomitant]
     Dosage: 40MG TWICE PER DAY
     Route: 042
     Dates: start: 20090224, end: 20090327
  4. TRIATEC [Concomitant]
     Dosage: 5MG PER DAY
     Route: 048
  5. CARDENSIEL [Concomitant]
     Dosage: 1.25MG PER DAY
     Route: 048
  6. LASILIX FAIBLE [Concomitant]
     Dosage: 20MG TWICE PER DAY
     Route: 048
     Dates: start: 20090302, end: 20090301

REACTIONS (6)
  - ACTIVATED PARTIAL THROMBOPLASTIN TIME PROLONGED [None]
  - ANAEMIA [None]
  - HYPOTENSION [None]
  - MELAENA [None]
  - RECTAL HAEMORRHAGE [None]
  - SHOCK HAEMORRHAGIC [None]
